FAERS Safety Report 9845846 (Version 1)
Quarter: 2014Q1

REPORT INFORMATION
  Report Type: Spontaneous
  Country: US (occurrence: None)
  Receive Date: 20140122
  Receipt Date: 20140122
  Transmission Date: 20141002
  Serious: Yes (Death)
  Sender: FDA-Public Use
  Company Number: B0960142A

PATIENT
  Age: 51 Year
  Sex: Female

DRUGS (7)
  1. AMLODIPINE (FORMULATION UNKNOWN) (GENERIC) (AMLODIPINE) [Suspect]
     Route: 048
  2. LAMOTRIGINE (FORMULATION UNKNOWN) (GENERIC) (LAMOTRIGINE) [Suspect]
     Route: 048
  3. CITALOPRAM [Suspect]
     Route: 048
  4. RISPERIDONE (FORMULATION UNKNOWN) (GENERIC) (RISPERIDONE) [Suspect]
     Route: 048
  5. NALTREXONE HYDROCHLORIDE [Suspect]
     Route: 048
  6. THYROXINE SODIUM [Suspect]
     Route: 048
  7. ESOMEPRAZOLE [Suspect]

REACTIONS (1)
  - Completed suicide [None]
